FAERS Safety Report 8078642-4 (Version None)
Quarter: 2012Q1

REPORT INFORMATION
  Report Type: 
  Country: None (occurrence: None)
  Receive Date: 20120124
  Receipt Date: 20120109
  Transmission Date: 20120608
  Serious: Yes (Hospitalization)
  Sender: FDA-Public Use
  Company Number: 2012MA000631

PATIENT
  Age: 15 Year
  Sex: Female

DRUGS (2)
  1. CARBAMAZEPINE [Suspect]
     Indication: EPILEPSY
  2. PHENOBARBITAL TABLETS UPS, 30 MG (PUREPAC) (PHENOBARBITAL) [Suspect]
     Indication: EPILEPSY
     Dosage: 300 MG; QD; IV
     Route: 042

REACTIONS (4)
  - HALLUCINATION [None]
  - ALTERED STATE OF CONSCIOUSNESS [None]
  - DELIRIUM [None]
  - DRUG INTERACTION [None]
